FAERS Safety Report 10628066 (Version 1)
Quarter: 2014Q4

REPORT INFORMATION
  Report Type: Spontaneous
  Country: US (occurrence: None)
  Receive Date: 20141203
  Receipt Date: 20141203
  Transmission Date: 20150529
  Serious: Yes (Disabling)
  Sender: FDA-Public Use
  Company Number: None

PATIENT
  Sex: Male
  Weight: 61.24 kg

DRUGS (12)
  1. CORGARD [Concomitant]
     Active Substance: NADOLOL
  2. ACTONEL [Suspect]
     Active Substance: RISEDRONATE SODIUM
     Indication: BONE DENSITY ABNORMAL
     Dosage: BY MOUTH
     Dates: start: 2007, end: 2014
  3. NEXIUM [Concomitant]
     Active Substance: ESOMEPRAZOLE MAGNESIUM
  4. COQ10 [Concomitant]
     Active Substance: UBIDECARENONE
  5. VITAMINS [Concomitant]
     Active Substance: VITAMINS
  6. LATANOPROST. [Concomitant]
     Active Substance: LATANOPROST
  7. AZOPT [Concomitant]
     Active Substance: BRINZOLAMIDE
  8. FENOFIBRATE. [Concomitant]
     Active Substance: FENOFIBRATE
  9. IMDUR [Concomitant]
     Active Substance: ISOSORBIDE MONONITRATE
  10. WARFARIN [Concomitant]
     Active Substance: WARFARIN
  11. CARDIZEM [Concomitant]
     Active Substance: DILTIAZEM HYDROCHLORIDE
  12. TUMS [Concomitant]
     Active Substance: CALCIUM CARBONATE

REACTIONS (3)
  - Weight decreased [None]
  - Nausea [None]
  - Abdominal pain [None]

NARRATIVE: CASE EVENT DATE: 20140701
